FAERS Safety Report 5702206-8 (Version None)
Quarter: 2008Q2

REPORT INFORMATION
  Report Type: 
  Country: None (occurrence: None)
  Receive Date: 20080411
  Receipt Date: 20080117
  Transmission Date: 20081010
  Serious: No
  Sender: FDA-Public Use
  Company Number: US-ABBOTT-08P-163-0434155-00

PATIENT
  Sex: Female
  Weight: 70.824 kg

DRUGS (3)
  1. DEPAKOTE [Suspect]
     Indication: BIPOLAR I DISORDER
     Route: 048
     Dates: start: 20070628, end: 20080116
  2. LITHIUM CARBONATE [Concomitant]
     Indication: BIPOLAR I DISORDER
     Route: 048
     Dates: start: 19900101
  3. TOPIRAMATE [Concomitant]
     Indication: HYPERTENSION
     Route: 048
     Dates: start: 20070801

REACTIONS (3)
  - ALOPECIA [None]
  - PSORIASIS [None]
  - RASH [None]
